FAERS Safety Report 5122498-6 (Version None)
Quarter: 2006Q4

REPORT INFORMATION
  Report Type: 
  Country: None (occurrence: None)
  Receive Date: 20061004
  Receipt Date: 20060926
  Transmission Date: 20070319
  Serious: Yes (Other)
  Sender: FDA-Public Use
  Company Number: 225986

PATIENT
  Age: 58 Year
  Sex: Female

DRUGS (6)
  1. XOLAIR [Suspect]
     Indication: ASTHMA
     Dosage: 375 MG, Q2W
     Dates: start: 20060207, end: 20060707
  2. VERAPAMIL [Concomitant]
  3. XOPENEX [Concomitant]
  4. SINGULAIR [Concomitant]
  5. ALBUTEROL (ALBUTEROL/ALBUTEROL SULFATE) [Concomitant]
  6. KEPPRA [Concomitant]

REACTIONS (4)
  - CONDUCTIVE DEAFNESS [None]
  - DEAFNESS UNILATERAL [None]
  - EAR PAIN [None]
  - TINNITUS [None]
